FAERS Safety Report 4857008-1 (Version None)
Quarter: 2005Q4

REPORT INFORMATION
  Report Type: 
  Country: None (occurrence: None)
  Receive Date: 20051219
  Receipt Date: 20041210
  Transmission Date: 20060501
  Serious: No
  Sender: FDA-Public Use
  Company Number: US-GLAXOSMITHKLINE-A0536886A

PATIENT
  Age: 59 Year
  Sex: Female

DRUGS (1)
  1. NICODERM CQ [Suspect]
     Dates: start: 20041127, end: 20041208

REACTIONS (1)
  - CHEST PAIN [None]
